FAERS Safety Report 16709375 (Version 2)
Quarter: 2019Q3

REPORT INFORMATION
  Report Type: Spontaneous
  Country: RO (occurrence: RO)
  Receive Date: 20190816
  Receipt Date: 20190821
  Transmission Date: 20191004
  Serious: Yes (Other)
  Sender: FDA-Public Use
  Company Number: RO-SA-2019SA213398

PATIENT
  Age: 44 Year
  Sex: Female
  Weight: 58 kg

DRUGS (1)
  1. MYOZYME [Suspect]
     Active Substance: ALGLUCOSIDASE ALFA
     Indication: GLYCOGEN STORAGE DISEASE TYPE II
     Dosage: 18.9 MG/KG, QOW
     Route: 042
     Dates: start: 20170417

REACTIONS (7)
  - Vertigo [Recovering/Resolving]
  - Gait disturbance [Recovering/Resolving]
  - Hemiparesis [Recovering/Resolving]
  - Stress [Recovering/Resolving]
  - Cerebellar infarction [Recovering/Resolving]
  - Hypertension [Recovering/Resolving]
  - Nausea [Recovering/Resolving]

NARRATIVE: CASE EVENT DATE: 2019
